FAERS Safety Report 8847537 (Version 2)
Quarter: 2012Q4

REPORT INFORMATION
  Report Type: 
  Country: US (occurrence: US)
  Receive Date: 20121018
  Receipt Date: 20121213
  Transmission Date: 20130627
  Serious: Yes (Hospitalization, Other)
  Sender: FDA-Public Use
  Company Number: US-ASTRAZENECA-2012SE77624

PATIENT
  Age: 73 Year
  Sex: Female
  Weight: 44.9 kg

DRUGS (19)
  1. SYMBICORT [Suspect]
     Indication: CHRONIC OBSTRUCTIVE PULMONARY DISEASE
     Dosage: 80/4.5 MCG 2 PUFFS TWO TIMES A DAY
     Route: 055
     Dates: start: 20111125
  2. SYMBICORT [Suspect]
     Indication: CHRONIC OBSTRUCTIVE PULMONARY DISEASE
     Dosage: 80/4.5 MCG 1 PUFF TWO TIMES A DAY
     Route: 055
     Dates: start: 20111216
  3. SYMBICORT [Suspect]
     Indication: CHRONIC OBSTRUCTIVE PULMONARY DISEASE
     Dosage: 80/4.5 MCG 2 PUFFS TWO TIMES A DAY
     Route: 055
     Dates: start: 20120327
  4. SYMBICORT [Suspect]
     Indication: CHRONIC OBSTRUCTIVE PULMONARY DISEASE
     Dosage: 80/4.5 MCG 2 PUFFS TWO TIMES A DAY
     Route: 055
     Dates: start: 20120529
  5. TOPROL XL [Suspect]
     Route: 048
  6. SPIRIVA [Suspect]
     Route: 065
     Dates: start: 20111125
  7. FLU SHOT [Concomitant]
     Dates: start: 20120930
  8. OXYCONTIN TB12 [Concomitant]
     Indication: PAIN
     Route: 048
     Dates: start: 20111125
  9. OXYCONTIN TB12 [Concomitant]
     Indication: PAIN
     Dosage: 20 MG IN AM AND 15 MG IN PM
     Route: 048
     Dates: start: 20120918
  10. OXYCODONE-ACETAMINOPHEN [Concomitant]
     Indication: PAIN
     Dosage: 10-325 MG TABLET EVERY 4 HOURS AS NEEDED
     Route: 048
     Dates: start: 20111125
  11. VALIUM [Concomitant]
     Route: 048
     Dates: start: 20111125
  12. VALIUM [Concomitant]
     Route: 048
     Dates: start: 20111125
  13. RAPID ACTING BRONCHODILATOR [Concomitant]
  14. AMITRIPTYLINE HCL [Concomitant]
     Route: 048
     Dates: start: 20111125
  15. AMITRIPTYLINE HCL [Concomitant]
     Route: 048
     Dates: start: 20120612
  16. ENALAPRIL MALEATE [Concomitant]
     Route: 048
     Dates: start: 20111125
  17. PROAIR HFA [Concomitant]
     Dosage: 180 MCG 2 PUFFS EVERY 4-6 HOURS AS NEEDED
     Route: 055
     Dates: start: 20111125
  18. PROAIR HFA [Concomitant]
     Dosage: 180 MCG 2 PUFFS EVERY 4-6 HOURS AS NEEDED
     Route: 055
     Dates: start: 20120327
  19. SIMVASTATIN [Concomitant]
     Route: 048
     Dates: start: 20111125

REACTIONS (56)
  - Intestinal obstruction [Recovered/Resolved]
  - Chronic obstructive pulmonary disease [Unknown]
  - Dehydration [Recovered/Resolved]
  - Abnormal loss of weight [Recovered/Resolved]
  - Chronic respiratory failure [Unknown]
  - Myocardial infarction [Unknown]
  - Pulmonary mass [Unknown]
  - Oral discomfort [Unknown]
  - Pain [Unknown]
  - Pyrexia [Unknown]
  - Aphthous stomatitis [Unknown]
  - General physical health deterioration [Unknown]
  - Chills [Unknown]
  - Orthopnoea [Unknown]
  - Pain in extremity [Unknown]
  - Faecal incontinence [Unknown]
  - Hypoacusis [Not Recovered/Not Resolved]
  - Gait disturbance [Unknown]
  - Productive cough [Recovered/Resolved]
  - Appetite disorder [Unknown]
  - Joint stiffness [Unknown]
  - Arthritis [Unknown]
  - Arteriosclerosis [Unknown]
  - Bile duct stone [Unknown]
  - Coronary artery disease [Unknown]
  - Intervertebral disc protrusion [Unknown]
  - Hyperlipidaemia [Unknown]
  - Cerumen impaction [Recovering/Resolving]
  - Deafness [Unknown]
  - Muscular weakness [Unknown]
  - Ear pain [Unknown]
  - Glossodynia [Unknown]
  - Asthma [Unknown]
  - Fatigue [Unknown]
  - Rhinorrhoea [Unknown]
  - Abdominal pain [Unknown]
  - Dyspepsia [Unknown]
  - Diarrhoea [Recovered/Resolved]
  - Asthenia [Unknown]
  - Weight increased [Recovered/Resolved]
  - Visual impairment [Unknown]
  - Chest pain [Recovered/Resolved]
  - Arthralgia [Unknown]
  - Hyperhidrosis [Unknown]
  - Confusional state [Unknown]
  - Dysphonia [Unknown]
  - Oropharyngeal pain [Unknown]
  - Increased tendency to bruise [Unknown]
  - Pruritus [Unknown]
  - Heart rate increased [Unknown]
  - Depression [Unknown]
  - Anxiety [Unknown]
  - Nervousness [Unknown]
  - Dizziness [Unknown]
  - Rash [Unknown]
  - Headache [Unknown]
